FAERS Safety Report 12222638 (Version 1)
Quarter: 2016Q1

REPORT INFORMATION
  Report Type: Spontaneous
  Country: US (occurrence: US)
  Receive Date: 20160330
  Receipt Date: 20160330
  Transmission Date: 20160526
  Serious: No
  Sender: FDA-Public Use
  Company Number: US-MYLANLABS-2015M1043559

PATIENT
  Sex: Female
  Weight: 46.71 kg

DRUGS (2)
  1. FENTANYL. [Suspect]
     Active Substance: FENTANYL
     Indication: PAIN
     Dosage: UNK
     Route: 062
     Dates: start: 201504, end: 201505
  2. OXYCODONE [Concomitant]
     Active Substance: OXYCODONE
     Dosage: UNK, Q6H, CHANGED Q 72HR

REACTIONS (1)
  - Drug ineffective [Not Recovered/Not Resolved]
